FAERS Safety Report 8203350-6 (Version None)
Quarter: 2012Q1

REPORT INFORMATION
  Report Type: 
  Country: None (occurrence: None)
  Receive Date: 20120312
  Receipt Date: 20120302
  Transmission Date: 20120608
  Serious: Yes (Disabling, Other)
  Sender: FDA-Public Use
  Company Number: US-ASTRAZENECA-2010SE48461

PATIENT
  Age: 64 Year
  Sex: Female
  Weight: 61.7 kg

DRUGS (17)
  1. SYMBICORT [Suspect]
     Dosage: 160/4.5 MCG 2 PUFFS BID
     Route: 055
  2. FLONASE [Concomitant]
     Indication: RHINITIS
     Dosage: ONE PUFF EACH NOSTRILS BID
     Route: 045
  3. POTASSIUM CHLORIDE [Concomitant]
     Indication: MUSCLE SPASMS
  4. MULTIPLE VITAMINS [Concomitant]
     Dosage: DAILY
  5. PREDNISONE [Concomitant]
     Indication: SARCOIDOSIS
     Dates: start: 20080922, end: 20090801
  6. CALCIUM WITH VITAMIN D [Concomitant]
  7. ARTHRITIS PAIN FORMULA [Concomitant]
  8. VITAMIN E [Concomitant]
  9. OCEAN [Concomitant]
     Dosage: BID
  10. ASPIRIN [Concomitant]
  11. CHONDROITIN [Concomitant]
  12. PRAVACHOL [Concomitant]
     Indication: HYPERLIPIDAEMIA
  13. GLUCOSAMINE [Concomitant]
  14. FIBER [Concomitant]
  15. SYMBICORT [Suspect]
     Indication: CHRONIC OBSTRUCTIVE PULMONARY DISEASE
     Dosage: 160/4.5 MCG 2 PUFFS BID
     Route: 055
     Dates: end: 20100901
  16. NEXIUM [Suspect]
     Indication: GASTROOESOPHAGEAL REFLUX DISEASE
     Route: 048
  17. NORVASC [Concomitant]
     Indication: HYPERTENSION

REACTIONS (7)
  - VISION BLURRED [None]
  - POSTERIOR CAPSULE OPACIFICATION [None]
  - EYE SWELLING [None]
  - CATARACT [None]
  - THROAT IRRITATION [None]
  - DYSPNOEA [None]
  - LYMPHADENOPATHY [None]
